FAERS Safety Report 25180114 (Version 1)
Quarter: 2025Q2

REPORT INFORMATION
  Report Type: Spontaneous
  Country: US (occurrence: US)
  Receive Date: 20250409
  Receipt Date: 20250409
  Transmission Date: 20250717
  Serious: No
  Sender: GALPHARM INTERNATIONAL
  Company Number: US-PERRIGO-24US007271

PATIENT
  Age: 69 Year
  Sex: Male
  Weight: 88.435 kg

DRUGS (3)
  1. DEXTROMETHORPHAN HYDROBROMIDE\GUAIFENESIN [Suspect]
     Active Substance: DEXTROMETHORPHAN HYDROBROMIDE\GUAIFENESIN
     Indication: Increased bronchial secretion
     Route: 048
     Dates: start: 20240731, end: 20240731
  2. DEXTROMETHORPHAN HYDROBROMIDE\GUAIFENESIN [Suspect]
     Active Substance: DEXTROMETHORPHAN HYDROBROMIDE\GUAIFENESIN
     Indication: Cough
  3. INSULIN NOS [Concomitant]
     Active Substance: INSULIN NOS
     Indication: Diabetes mellitus
     Route: 065

REACTIONS (1)
  - Drug ineffective [Unknown]

NARRATIVE: CASE EVENT DATE: 20240731
